FAERS Safety Report 12668729 (Version 3)
Quarter: 2016Q3

REPORT INFORMATION
  Report Type: Other
  Country: CA (occurrence: CA)
  Receive Date: 20160819
  Receipt Date: 20160919
  Transmission Date: 20161109
  Serious: Yes (Disabling)
  Sender: FDA-Public Use
  Company Number: CA-APOTEX-2016AP010564

PATIENT

DRUGS (1)
  1. APO-CANDESARTAN/HCTZ [Suspect]
     Active Substance: CANDESARTAN CILEXETIL\HYDROCHLOROTHIAZIDE
     Indication: HYPERTENSION
     Dosage: 1 DF, QD
     Route: 048

REACTIONS (3)
  - Product substitution issue [Recovered/Resolved]
  - Malaise [Recovered/Resolved]
  - Chest discomfort [Recovered/Resolved]
